FAERS Safety Report 19576929 (Version 2)
Quarter: 2022Q1

REPORT INFORMATION
  Report Type: Spontaneous
  Country: US (occurrence: US)
  Receive Date: 20210719
  Receipt Date: 20220112
  Transmission Date: 20220423
  Serious: No
  Sender: FDA-Public Use
  Company Number: US-GLENMARK PHARMACEUTICALS-2021GMK053346

PATIENT

DRUGS (3)
  1. MUPIROCIN [Suspect]
     Active Substance: MUPIROCIN
     Indication: Anal fissure
     Dosage: UNK, BID (EVERY 12 HOURS FOR 7 DAYS); ROUTE: ANAL
     Route: 050
  2. MUPIROCIN [Suspect]
     Active Substance: MUPIROCIN
     Indication: Constipation
  3. MUPIROCIN [Suspect]
     Active Substance: MUPIROCIN
     Indication: Contusion

REACTIONS (1)
  - Product use in unapproved indication [Unknown]
